FAERS Safety Report 23772817 (Version 1)
Quarter: 2024Q2

REPORT INFORMATION
  Report Type: Report from Study
  Country: US (occurrence: US)
  Receive Date: 20240423
  Receipt Date: 20240423
  Transmission Date: 20240715
  Serious: Yes (Other)
  Sender: FDA-Public Use
  Company Number: US-HORIZON THERAPEUTICS-HZN-2024-004573

PATIENT

DRUGS (2)
  1. TEPEZZA [Suspect]
     Active Substance: TEPROTUMUMAB-TRBW
     Indication: Endocrine ophthalmopathy
     Dosage: FIRST INFUSION
     Route: 042
     Dates: start: 20230922
  2. TEPEZZA [Suspect]
     Active Substance: TEPROTUMUMAB-TRBW
     Dosage: EIGHTH INFUSION
     Route: 042
     Dates: start: 20140216

REACTIONS (8)
  - Myasthenia gravis [Unknown]
  - Aphthous ulcer [Unknown]
  - COVID-19 [Unknown]
  - Weight decreased [Unknown]
  - Dysphagia [Unknown]
  - Candida infection [Unknown]
  - Visual impairment [Recovering/Resolving]
  - Drug ineffective [Unknown]
